FAERS Safety Report 8154994-1 (Version None)
Quarter: 2012Q1

REPORT INFORMATION
  Report Type: 
  Country: None (occurrence: None)
  Receive Date: 20120221
  Receipt Date: 20120206
  Transmission Date: 20120608
  Serious: No
  Sender: FDA-Public Use
  Company Number: PL-GE HEALTHCARE MEDICAL DIAGNOSTICS-OSCN-NO-1202S-0012

PATIENT
  Sex: Female
  Weight: 100 kg

DRUGS (3)
  1. OMNISCAN [Suspect]
     Indication: DIAGNOSTIC PROCEDURE
  2. VALSARTAN (TENSART) [Concomitant]
  3. OMNISCAN [Suspect]
     Indication: PITUITARY TUMOUR BENIGN
     Route: 042
     Dates: start: 20120126, end: 20120126

REACTIONS (2)
  - VISUAL IMPAIRMENT [None]
  - VISION BLURRED [None]
